FAERS Safety Report 9419214 (Version 1)
Quarter: 2013Q3

REPORT INFORMATION
  Report Type: Spontaneous
  Country: US (occurrence: None)
  Receive Date: 20130722
  Receipt Date: 20130722
  Transmission Date: 20140515
  Serious: Yes (Disabling)
  Sender: FDA-Public Use
  Company Number: None

PATIENT
  Age: 27 Year
  Sex: Female

DRUGS (1)
  1. TOBRAMYCIN [Suspect]
     Dates: start: 20130422, end: 20130514

REACTIONS (2)
  - Hearing impaired [None]
  - Deafness neurosensory [None]
